FAERS Safety Report 19910563 (Version 1)
Quarter: 2021Q4

REPORT INFORMATION
  Report Type: Spontaneous
  Country: US (occurrence: US)
  Receive Date: 20211004
  Receipt Date: 20211004
  Transmission Date: 20220303
  Serious: Yes (Hospitalization)
  Sender: FDA-Public Use
  Company Number: US-DRREDDYS-LIT/USA/21/0142195

PATIENT
  Age: 31 Year
  Sex: Male

DRUGS (4)
  1. THIAMINE HYDROCHLORIDE [Suspect]
     Active Substance: THIAMINE HYDROCHLORIDE
     Indication: COVID-19
  2. CHLOROQUINE [Suspect]
     Active Substance: CHLOROQUINE
     Indication: COVID-19
  3. ANAKINRA [Suspect]
     Active Substance: ANAKINRA
     Indication: COVID-19
  4. ASCORBIC ACID [Suspect]
     Active Substance: ASCORBIC ACID
     Indication: COVID-19

REACTIONS (1)
  - Drug ineffective for unapproved indication [Unknown]
